FAERS Safety Report 23241004 (Version 1)
Quarter: 2023Q4

REPORT INFORMATION
  Report Type: Spontaneous
  Country: BR (occurrence: BR)
  Receive Date: 20231129
  Receipt Date: 20231129
  Transmission Date: 20240110
  Serious: Yes (Other)
  Sender: FDA-Public Use
  Company Number: BR-PHATHOM PHARMACEUTICALS INC.-2023PHT00277

PATIENT
  Sex: Female
  Weight: 64 kg

DRUGS (3)
  1. VONOPRAZAN FUMARATE [Suspect]
     Active Substance: VONOPRAZAN FUMARATE
     Indication: Gastrooesophageal reflux disease
     Dosage: 20 MG, 1X/DAY
     Route: 065
  2. VONOPRAZAN FUMARATE [Suspect]
     Active Substance: VONOPRAZAN FUMARATE
     Dosage: UNK
     Route: 048
     Dates: start: 20231030
  3. DOMPERIDONE [Concomitant]
     Active Substance: DOMPERIDONE
     Dosage: UNK

REACTIONS (15)
  - Choking [Unknown]
  - Hypotonia [Unknown]
  - Chronic obstructive pulmonary disease [Unknown]
  - Rheumatic disorder [Unknown]
  - Frustration tolerance decreased [Unknown]
  - Dyspnoea [Unknown]
  - Respiratory disorder [Unknown]
  - Off label use [Unknown]
  - Product packaging quantity issue [Unknown]
  - Incorrect dose administered [Unknown]
  - Product dose omission issue [Unknown]
  - Product packaging issue [Unknown]
  - Product physical issue [Unknown]
  - Liquid product physical issue [Unknown]
  - Product use issue [Unknown]
